FAERS Safety Report 14349791 (Version 1)
Quarter: 2018Q1

REPORT INFORMATION
  Report Type: Spontaneous
  Country: US (occurrence: US)
  Receive Date: 20180103
  Receipt Date: 20180103
  Transmission Date: 20180509
  Serious: Yes (Other)
  Sender: FDA-Public Use
  Company Number: None

PATIENT
  Age: 58 Year
  Sex: Female
  Weight: 71.55 kg

DRUGS (17)
  1. ESCITALOPRAM [Concomitant]
     Active Substance: ESCITALOPRAM OXALATE
  2. MAGNESIUM GLYCINATE [Concomitant]
     Active Substance: MAGNESIUM GLYCINATE
  3. ALBUTEROL HFA [Concomitant]
     Active Substance: ALBUTEROL SULFATE
  4. MULTIPLE VITAMIN [Concomitant]
     Active Substance: VITAMINS
  5. IRON [Concomitant]
     Active Substance: IRON
  6. VYVANSE [Concomitant]
     Active Substance: LISDEXAMFETAMINE DIMESYLATE
  7. UBIQUINOL [Concomitant]
     Active Substance: UBIQUINOL
  8. FISH OIL [Concomitant]
     Active Substance: FISH OIL
  9. PROBIOTIC [Concomitant]
     Active Substance: PROBIOTICS NOS
  10. CETIRIZINE HYDROCHLORIDE TABLETS10 MG [Suspect]
     Active Substance: CETIRIZINE HYDROCHLORIDE
     Indication: ALLERGY TO ANIMAL
     Route: 048
  11. BUSPIRONE [Concomitant]
     Active Substance: BUSPIRONE HYDROCHLORIDE
  12. CETIRIZINE HYDROCHLORIDE TABLETS10 MG [Suspect]
     Active Substance: CETIRIZINE HYDROCHLORIDE
     Indication: PERENNIAL ALLERGY
     Route: 048
  13. FLONASE [Concomitant]
     Active Substance: FLUTICASONE PROPIONATE
  14. VITAMIN D3 [Concomitant]
     Active Substance: CHOLECALCIFEROL
  15. CETIRIZINE HYDROCHLORIDE TABLETS10 MG [Suspect]
     Active Substance: CETIRIZINE HYDROCHLORIDE
     Indication: SEASONAL ALLERGY
     Route: 048
  16. DEPLIN [Concomitant]
     Active Substance: LEVOMEFOLATE CALCIUM
  17. ESTROVERA [Concomitant]

REACTIONS (4)
  - Scab [None]
  - Erythema [None]
  - Pruritus generalised [None]
  - Urticaria [None]

NARRATIVE: CASE EVENT DATE: 20171230
